FAERS Safety Report 5160445-1 (Version None)
Quarter: 2006Q4

REPORT INFORMATION
  Report Type: 
  Country: None (occurrence: None)
  Receive Date: 20061121
  Receipt Date: 20061108
  Transmission Date: 20070319
  Serious: Yes (Other)
  Sender: FDA-Public Use
  Company Number: 2006-150154-NL

PATIENT
  Age: 36 Year
  Sex: Female
  Weight: 52.2 kg

DRUGS (2)
  1. NUVARING [Suspect]
     Indication: CONTRACEPTION
     Dosage: VAGINAL, CONTINUOUS
     Route: 067
     Dates: start: 20061002
  2. VITAMINS [Concomitant]

REACTIONS (4)
  - INAPPROPRIATE SCHEDULE OF DRUG ADMINISTRATION [None]
  - KIDNEY INFECTION [None]
  - MENORRHAGIA [None]
  - METRORRHAGIA [None]
